APPROVED DRUG PRODUCT: THALITONE
Active Ingredient: CHLORTHALIDONE
Strength: 25MG
Dosage Form/Route: TABLET;ORAL
Application: A088051 | Product #001
Applicant: MONARCH PHARMACEUTICALS INC
Approved: Nov 12, 1982 | RLD: No | RS: No | Type: DISCN